FAERS Safety Report 6600479-0 (Version None)
Quarter: 2010Q1

REPORT INFORMATION
  Report Type: 
  Country: None (occurrence: None)
  Receive Date: 20100223
  Receipt Date: 20100223
  Transmission Date: 20100710
  Serious: Yes (Other)
  Sender: FDA-Public Use
  Company Number: None

PATIENT
  Age: 51 Year
  Sex: Male
  Weight: 92.5338 kg

DRUGS (2)
  1. LEVAQUIN [Suspect]
     Indication: NASOPHARYNGITIS
     Dosage: FORGET NOT SURE 10 DAYS PO
     Route: 048
     Dates: start: 20080101, end: 20091229
  2. LEVAQUIN [Suspect]
     Indication: SINUSITIS
     Dosage: FORGET NOT SURE 10 DAYS PO
     Route: 048
     Dates: start: 20080101, end: 20091229

REACTIONS (2)
  - HYPOAESTHESIA [None]
  - TENDONITIS [None]
